FAERS Safety Report 12563557 (Version 1)
Quarter: 2016Q3

REPORT INFORMATION
  Report Type: Spontaneous
  Country: IT (occurrence: IT)
  Receive Date: 20160715
  Receipt Date: 20160715
  Transmission Date: 20161109
  Serious: Yes (Other)
  Sender: FDA-Public Use
  Company Number: IT-GLAXOSMITHKLINE-IT2016GSK082056

PATIENT
  Age: 39 Year
  Sex: Female

DRUGS (2)
  1. SUMATRIPTAN (SUMATRIPTAN SUCCINATE) [Suspect]
     Active Substance: SUMATRIPTAN SUCCINATE
     Indication: HEADACHE
     Dosage: UNK
     Dates: start: 20160404, end: 20160404
  2. LIOMETACEN [Suspect]
     Active Substance: INDOMETHACIN SODIUM
     Indication: INFLAMMATION
     Dosage: UNK
     Dates: start: 20160404, end: 20160404

REACTIONS (4)
  - Off label use [Unknown]
  - Drug effect incomplete [Recovering/Resolving]
  - Nausea [Recovering/Resolving]
  - Drug abuse [Recovering/Resolving]

NARRATIVE: CASE EVENT DATE: 20160404
